FAERS Safety Report 22227147 (Version 1)
Quarter: 2023Q2

REPORT INFORMATION
  Report Type: Report from Study
  Country: CA (occurrence: CA)
  Receive Date: 20230419
  Receipt Date: 20230419
  Transmission Date: 20230722
  Serious: Yes (Hospitalization)
  Sender: FDA-Public Use
  Company Number: CA-CELLTRION INC.-2023CA008192

PATIENT

DRUGS (1)
  1. TRUXIMA [Suspect]
     Active Substance: RITUXIMAB-ABBS
     Indication: Rheumatoid arthritis
     Dosage: 940 MG, WEEKLY
     Route: 042
     Dates: start: 20230327

REACTIONS (16)
  - Pain [Unknown]
  - Arthralgia [Unknown]
  - Nausea [Unknown]
  - Pyrexia [Unknown]
  - Chills [Unknown]
  - Adverse drug reaction [Unknown]
  - C-reactive protein increased [Unknown]
  - Groin pain [Not Recovered/Not Resolved]
  - Red blood cell sedimentation rate increased [Unknown]
  - Serum sickness [Unknown]
  - Rash [Unknown]
  - Arthralgia [Not Recovered/Not Resolved]
  - Drug hypersensitivity [Unknown]
  - Intentional dose omission [Unknown]
  - Off label use [Unknown]
  - Underdose [Unknown]
